FAERS Safety Report 24460646 (Version 1)
Quarter: 2024Q4

REPORT INFORMATION
  Report Type: Spontaneous
  Country: CL (occurrence: CL)
  Receive Date: 20241018
  Receipt Date: 20241018
  Transmission Date: 20250114
  Serious: No
  Sender: ROCHE
  Company Number: CL-ROCHE-3572916

PATIENT
  Age: 18 Year
  Sex: Male
  Weight: 68.0 kg

DRUGS (2)
  1. RITUXIMAB [Suspect]
     Active Substance: RITUXIMAB
     Indication: Multiple sclerosis
     Dosage: LAST INFUSION WAS ON 08/MAR/2024.
     Route: 041
     Dates: start: 2018
  2. MELATONIN [Concomitant]
     Active Substance: MELATONIN
     Dosage: 1 TABLET OF 5MG AT NIGHT
     Route: 048

REACTIONS (2)
  - Off label use [Unknown]
  - No adverse event [Unknown]

NARRATIVE: CASE EVENT DATE: 20180101
